FAERS Safety Report 9796527 (Version 1)
Quarter: 2014Q1

REPORT INFORMATION
  Report Type: Spontaneous
  Country: US (occurrence: US)
  Receive Date: 20140103
  Receipt Date: 20140103
  Transmission Date: 20141002
  Serious: No
  Sender: FDA-Public Use
  Company Number: US-TEVA-451633USA

PATIENT
  Age: 28 Year
  Sex: Female
  Weight: 72.64 kg

DRUGS (3)
  1. PARAGARD 380A [Suspect]
     Indication: CONTRACEPTION
     Route: 015
     Dates: start: 20131105
  2. TRILEPTAL [Concomitant]
     Indication: BIPOLAR DISORDER
  3. LIMBITROL [Concomitant]
     Indication: DEPRESSION

REACTIONS (1)
  - Hair growth abnormal [Not Recovered/Not Resolved]
